FAERS Safety Report 24457131 (Version 1)
Quarter: 2024Q4

REPORT INFORMATION
  Report Type: Report from Study
  Country: US (occurrence: US)
  Receive Date: 20241018
  Receipt Date: 20241018
  Transmission Date: 20250114
  Serious: Yes (Hospitalization, Other)
  Sender: ABBVIE
  Company Number: US-ABBVIE-5964741

PATIENT
  Sex: Male

DRUGS (1)
  1. SKYRIZI [Suspect]
     Active Substance: RISANKIZUMAB-RZAA
     Indication: Psoriasis
     Route: 058
     Dates: start: 20240429

REACTIONS (4)
  - Pulmonary oedema [Unknown]
  - Atrial fibrillation [Recovering/Resolving]
  - Hypersomnia [Unknown]
  - Malaise [Unknown]

NARRATIVE: CASE EVENT DATE: 20240101
